FAERS Safety Report 19211258 (Version 1)
Quarter: 2021Q2

REPORT INFORMATION
  Report Type: Spontaneous
  Country: GB (occurrence: GB)
  Receive Date: 20210501
  Receipt Date: 20210501
  Transmission Date: 20210717
  Serious: Yes (Other)
  Sender: FDA-Public Use
  Company Number: GB-ACCORD-223857

PATIENT
  Age: 47 Year
  Sex: Female
  Weight: 88 kg

DRUGS (4)
  1. ASTRAZENECA [Concomitant]
     Indication: COVID-19 IMMUNISATION
     Dosage: 1 DOSE BY INTRAMUSCULAR INJECTION
     Dates: start: 20210129, end: 20210129
  2. PRAVASTATIN. [Suspect]
     Active Substance: PRAVASTATIN
     Indication: TYPE 2 DIABETES MELLITUS
     Dosage: AT NIGHT
     Dates: start: 20210410, end: 20210416
  3. ASTRAZENECA [Concomitant]
     Indication: COVID-19 IMMUNISATION
     Dosage: 1 DOSE BY INTRAMUSCULAR INJECTION
     Dates: start: 20210413, end: 20210413
  4. OXYBUTYNIN. [Concomitant]
     Active Substance: OXYBUTYNIN CHLORIDE

REACTIONS (2)
  - Bladder spasm [Recovered/Resolved]
  - Bladder pain [Unknown]
